FAERS Safety Report 9744344 (Version 1)
Quarter: 2013Q4

REPORT INFORMATION
  Report Type: Spontaneous
  Country: DE (occurrence: DE)
  Receive Date: 20131210
  Receipt Date: 20131210
  Transmission Date: 20140711
  Serious: Yes (Hospitalization)
  Sender: FDA-Public Use
  Company Number: GXKR2013DE003753

PATIENT
  Sex: Male

DRUGS (4)
  1. ACETYLSALICYLIC ACID [Suspect]
     Dosage: UNK
     Route: 048
  2. ACETYLSALICYLIC ACID [Suspect]
     Dosage: 100 MG, PRN
     Route: 048
  3. METOHEXAL RETARD [Suspect]
     Indication: HYPERTENSION
     Dosage: 100 MG, UNK
     Route: 048
  4. METOHEXAL RETARD [Suspect]
     Dosage: 100 MG, UNK
     Route: 048

REACTIONS (3)
  - Cardiac disorder [Recovered/Resolved]
  - Blood pressure increased [Recovered/Resolved]
  - Drug administration error [Recovered/Resolved]
